FAERS Safety Report 12675709 (Version 1)
Quarter: 2016Q3

REPORT INFORMATION
  Report Type: Spontaneous
  Country: US (occurrence: None)
  Receive Date: 20160822
  Receipt Date: 20160822
  Transmission Date: 20161109
  Serious: Yes (Life-Threatening, Hospitalization)
  Sender: FDA-Public Use
  Company Number: None

PATIENT
  Age: 67 Year
  Sex: Male
  Weight: 73 kg

DRUGS (2)
  1. GADAVIST [Suspect]
     Active Substance: GADOBUTROL
     Indication: NUCLEAR MAGNETIC RESONANCE IMAGING
     Route: 042
  2. GADAVIST [Suspect]
     Active Substance: GADOBUTROL
     Indication: RENAL MASS
     Route: 042

REACTIONS (4)
  - Unresponsive to stimuli [None]
  - Cardio-respiratory arrest [None]
  - Contrast media reaction [None]
  - Dyspnoea [None]

NARRATIVE: CASE EVENT DATE: 20160818
